FAERS Safety Report 5224814-3 (Version None)
Quarter: 2007Q1

REPORT INFORMATION
  Report Type: 
  Country: None (occurrence: None)
  Receive Date: 20070131
  Receipt Date: 20070124
  Transmission Date: 20070707
  Serious: Yes (Hospitalization)
  Sender: FDA-Public Use
  Company Number: HQWYE436224JAN07

PATIENT
  Age: 76 Year
  Sex: Female

DRUGS (3)
  1. CORDARONE [Suspect]
     Indication: ARRHYTHMIA
     Route: 048
     Dates: start: 20030101, end: 20060101
  2. ZOCOR [Concomitant]
     Indication: HYPERCHOLESTEROLAEMIA
     Dosage: 20 MG EVERY
     Route: 048
  3. COZAAR [Concomitant]
     Indication: ESSENTIAL HYPERTENSION

REACTIONS (3)
  - HEADACHE [None]
  - HYPOTHYROIDISM [None]
  - NECK PAIN [None]
